FAERS Safety Report 25871456 (Version 2)
Quarter: 2025Q4

REPORT INFORMATION
  Report Type: Spontaneous
  Country: JP (occurrence: JP)
  Receive Date: 20251001
  Receipt Date: 20251003
  Transmission Date: 20260118
  Serious: Yes (Other)
  Sender: PFIZER
  Company Number: JP-MLMSERVICE-20250919-PI651334-00101-1

PATIENT
  Age: 8 Decade
  Sex: Female

DRUGS (3)
  1. METHYLPREDNISOLONE [Suspect]
     Active Substance: METHYLPREDNISOLONE
     Indication: Thymoma malignant
     Dosage: 2 CYCLES
  2. CISPLATIN [Suspect]
     Active Substance: CISPLATIN
     Indication: Thymoma malignant
     Dosage: 2 CYCLES
  3. DOXORUBICIN [Suspect]
     Active Substance: DOXORUBICIN
     Indication: Thymoma malignant
     Dosage: 2 CYCLES

REACTIONS (5)
  - Neutropenia [Unknown]
  - Oedema [Unknown]
  - Weight increased [Unknown]
  - Off label use [Unknown]
  - Drug effective for unapproved indication [Unknown]
